FAERS Safety Report 5445392-X (Version None)
Quarter: 2007Q3

REPORT INFORMATION
  Report Type: 
  Country: None (occurrence: None)
  Receive Date: 20070731
  Receipt Date: 20070614
  Transmission Date: 20080115
  Serious: Yes (Hospitalization)
  Sender: FDA-Public Use
  Company Number: US200706003734

PATIENT
  Age: 58 Year
  Sex: Female
  Weight: 127 kg

DRUGS (4)
  1. BYETTA [Suspect]
     Indication: TYPE 2 DIABETES MELLITUS
     Dosage: 10 UG, 2/D, SUBCUTANEOUS
     Route: 058
     Dates: start: 20060101
  2. METFORMIN HCL [Concomitant]
  3. AVANDAMET [Concomitant]
  4. ASPIRIN [Concomitant]

REACTIONS (2)
  - DIZZINESS [None]
  - INJECTION SITE HAEMORRHAGE [None]
